FAERS Safety Report 9529752 (Version 1)
Quarter: 2013Q3

REPORT INFORMATION
  Report Type: Spontaneous
  Country: DE (occurrence: DE)
  Receive Date: 20130917
  Receipt Date: 20130917
  Transmission Date: 20140515
  Serious: Yes (Hospitalization, Other)
  Sender: FDA-Public Use
  Company Number: DE-GLAXOSMITHKLINE-D0081042A

PATIENT
  Age: 0 None
  Sex: Male
  Weight: 3.3 kg

DRUGS (6)
  1. LAMOTRIGINE [Suspect]
     Indication: DEPRESSION
     Dosage: 200MG PER DAY
     Route: 064
     Dates: start: 20090619, end: 20100316
  2. PHENOBARBITAL [Suspect]
     Indication: NEONATAL RESPIRATORY DISTRESS SYNDROME
     Dosage: 5MGK PER DAY
     Route: 065
     Dates: start: 201003, end: 201003
  3. TREVILOR [Suspect]
     Indication: DEPRESSION
     Dosage: 225MG PER DAY
     Route: 064
     Dates: start: 20090619, end: 20100316
  4. PROMETHAZINE [Suspect]
     Indication: OBSESSIVE-COMPULSIVE DISORDER
     Dosage: 25MG PER DAY
     Route: 064
     Dates: start: 20090619, end: 20100316
  5. L THYROXIN [Concomitant]
     Indication: HYPOTHYROIDISM
     Dosage: 50MCG PER DAY
     Route: 064
     Dates: start: 20090619, end: 20100316
  6. FOLIC ACID [Concomitant]
     Indication: PROPHYLAXIS OF NEURAL TUBE DEFECT
     Dosage: .8MG PER DAY
     Route: 064
     Dates: start: 20090701

REACTIONS (5)
  - Neonatal respiratory distress syndrome [Recovered/Resolved]
  - Bradycardia neonatal [Recovered/Resolved]
  - Drug withdrawal syndrome neonatal [Recovered/Resolved]
  - Oxygen saturation decreased [Recovered/Resolved]
  - Foetal exposure during pregnancy [Unknown]
